FAERS Safety Report 9144109 (Version 2)
Quarter: 2013Q1

REPORT INFORMATION
  Report Type: Spontaneous
  Country: JP (occurrence: JP)
  Receive Date: 20130306
  Receipt Date: 20130318
  Transmission Date: 20140127
  Serious: Yes (Hospitalization)
  Sender: FDA-Public Use
  Company Number: JP-GLAXOSMITHKLINE-B0869490A

PATIENT
  Age: 29 Year
  Sex: Female

DRUGS (10)
  1. LAMICTAL [Suspect]
     Indication: BIPOLAR DISORDER
     Dosage: 25MG TWICE PER DAY
     Route: 048
     Dates: start: 20130124, end: 20130215
  2. PAXIL [Suspect]
     Indication: DEPRESSION
     Dosage: 12.5MG PER DAY
     Route: 048
     Dates: start: 20130124, end: 20130211
  3. PAXIL [Suspect]
     Indication: DEPRESSION
     Dosage: 23.5MG PER DAY
     Route: 048
     Dates: start: 20130212, end: 20130215
  4. AMOXAN [Concomitant]
     Indication: DEPRESSION
     Dosage: 25MG TWICE PER DAY
     Route: 048
     Dates: start: 20130131
  5. LEXAPRO [Concomitant]
     Indication: DEPRESSION
     Dosage: 20MG PER DAY
     Route: 048
     Dates: start: 20130131, end: 20130215
  6. ROHYPNOL [Concomitant]
     Indication: INSOMNIA
     Dosage: 2MG PER DAY
     Route: 048
     Dates: start: 20130131, end: 20130215
  7. MEILAX [Concomitant]
     Dosage: 1MG TWICE PER DAY
     Route: 048
  8. AKINETON [Concomitant]
     Dosage: 1MG FOUR TIMES PER DAY
     Route: 065
  9. GASLON N [Concomitant]
     Dosage: 2MG THREE TIMES PER DAY
     Route: 048
  10. LENDORMIN [Concomitant]
     Indication: INSOMNIA
     Dosage: .25MG PER DAY
     Route: 048
     Dates: start: 20130124, end: 20130215

REACTIONS (8)
  - Drug reaction with eosinophilia and systemic symptoms [Unknown]
  - Rash [Recovering/Resolving]
  - Erythema [Recovering/Resolving]
  - Liver function test abnormal [Unknown]
  - Oropharyngeal pain [Unknown]
  - Pyrexia [Unknown]
  - Lymphadenopathy [Unknown]
  - Skin disorder [Unknown]
